FAERS Safety Report 4551304-3 (Version None)
Quarter: 2005Q1

REPORT INFORMATION
  Report Type: 
  Country: None (occurrence: None)
  Receive Date: 20050110
  Receipt Date: 20041223
  Transmission Date: 20050727
  Serious: Yes (Disabling)
  Sender: FDA-Public Use
  Company Number: S04-UKI-08309-01

PATIENT
  Sex: Female

DRUGS (10)
  1. CITALOPRAM HYDROBROMIDE [Suspect]
     Dates: start: 20001208
  2. LOFEPRAMINE [Suspect]
     Dates: start: 20040301
  3. OMEPRAZOLE [Concomitant]
  4. LOSARTAN [Concomitant]
  5. VENLAFAXINE HCL [Suspect]
     Dates: start: 20040401
  6. LENTIZOL (AMITRIPTYLINE HYDROCHLORIDE) [Suspect]
  7. FLUOXETINE [Suspect]
     Dates: start: 20000126
  8. PAROXETINE HCL [Suspect]
     Dates: start: 20010206
  9. DOTHEIPIN [Suspect]
     Dates: start: 20011012
  10. MIRTAZAPINE [Suspect]
     Dates: start: 20010730

REACTIONS (1)
  - BLEPHARITIS [None]
